FAERS Safety Report 6037557-3 (Version None)
Quarter: 2009Q1

REPORT INFORMATION
  Report Type: 
  Country: None (occurrence: None)
  Receive Date: 20090113
  Receipt Date: 20090101
  Transmission Date: 20090719
  Serious: Yes (Other)
  Sender: FDA-Public Use
  Company Number: CHPA2009US00488

PATIENT
  Sex: Female

DRUGS (2)
  1. BENEFIBER W/WHEAT DEXTRIN (NCH) (WHEAT DEXTRIN) POWDER [Suspect]
     Dosage: 2 TSP, BID, ORAL
     Route: 048
     Dates: start: 20081201
  2. DRUG THERAPY NOS [Concomitant]

REACTIONS (2)
  - CATARACT OPERATION [None]
  - FAECES DISCOLOURED [None]
